FAERS Safety Report 19213919 (Version 8)
Quarter: 2023Q4

REPORT INFORMATION
  Report Type: Report from Study
  Country: AT (occurrence: AT)
  Receive Date: 20210505
  Receipt Date: 20231023
  Transmission Date: 20240110
  Serious: Yes (Hospitalization)
  Sender: FDA-Public Use
  Company Number: AT-CELLTRION INC.-2019AT028758

PATIENT

DRUGS (28)
  1. HERCEPTIN [Suspect]
     Active Substance: TRASTUZUMAB
     Indication: Breast cancer
     Dosage: MOST RECENT DOSE PRIOR TO THE EVENT: 21/SEP/2021; FREQUENCY: EVERY 3 WEEKS
     Route: 042
     Dates: start: 20180810, end: 20180810
  2. TRASTUZUMAB [Suspect]
     Active Substance: TRASTUZUMAB
     Indication: Breast cancer metastatic
     Dosage: 464 MG, EVERY 3 WEEKS (MOST RECENT DOSE PRIOR TO THE EVENT: 21/SEP/2018)
     Route: 042
     Dates: start: 20180810, end: 20180810
  3. TRASTUZUMAB [Suspect]
     Active Substance: TRASTUZUMAB
     Dosage: 336 MG, EVERY 3 WEEKS
     Route: 042
     Dates: start: 20180921, end: 20181106
  4. DENOSUMAB [Suspect]
     Active Substance: DENOSUMAB
     Indication: HER2 positive breast cancer
     Dosage: 120 MG, EVERY 4 WEEKS
     Route: 058
     Dates: start: 20181012
  5. PERTUZUMAB [Suspect]
     Active Substance: PERTUZUMAB
     Indication: Breast cancer metastatic
     Dosage: 840 MG, EVERY 3 WEEKS
     Route: 042
     Dates: start: 20180810, end: 20180810
  6. PERTUZUMAB [Suspect]
     Active Substance: PERTUZUMAB
     Dosage: 420MG, EVERY 3 WEEKS
     Route: 042
     Dates: start: 20180921, end: 20190201
  7. PACLITAXEL [Suspect]
     Active Substance: PACLITAXEL
     Indication: Breast cancer metastatic
     Dosage: 129.61 MG, 1/WEEK
     Route: 058
     Dates: start: 20180810, end: 20180824
  8. PACLITAXEL [Suspect]
     Active Substance: PACLITAXEL
     Dosage: 279.32 MG, 1/WEEK
     Route: 042
     Dates: start: 20180921, end: 20180921
  9. PACLITAXEL [Suspect]
     Active Substance: PACLITAXEL
     Dosage: UNK
  10. PACLITAXEL [Suspect]
     Active Substance: PACLITAXEL
     Dosage: 127.69 MG, 1 PER WEEK
     Dates: start: 20180928, end: 20181019
  11. LETROZOLE [Suspect]
     Active Substance: LETROZOLE
     Indication: Breast cancer metastatic
     Dosage: 2.5 MG, OD - ONCE DAILY
     Route: 048
     Dates: start: 20181029
  12. LISINOPRIL [Concomitant]
     Active Substance: LISINOPRIL
     Dosage: 20 MG, 1 PER DAY
  13. AMLODIPINE [Concomitant]
     Active Substance: AMLODIPINE BESYLATE
     Dosage: 5 MG
     Dates: start: 201812
  14. VITAMINS WITH MINERALS [Concomitant]
     Active Substance: MINERALS\VITAMINS
     Dosage: ONGOING = CHECKED
     Dates: start: 20181029
  15. CIPRALEX [Concomitant]
     Active Substance: ESCITALOPRAM OXALATE
     Dosage: 5 MG, 1 PER DAY
     Dates: start: 201901
  16. DEXABENE [Concomitant]
     Dosage: 20 MG, 1 PER WEEK
     Dates: start: 20180810, end: 20181019
  17. DEXAGENTA [Concomitant]
  18. FENAKUT [Concomitant]
     Dosage: 3 MG, 1 PER WEEK
     Dates: start: 20180810
  19. GLUCOPHAGE [Concomitant]
     Active Substance: METFORMIN HYDROCHLORIDE
     Indication: Diabetes mellitus
     Dosage: 500 MG
  20. CITRIC ACID MONOHYDRATE\POTASSIUM BICARBONATE\POTASSIUM CITRATE [Concomitant]
     Active Substance: CITRIC ACID MONOHYDRATE\POTASSIUM BICARBONATE\POTASSIUM CITRATE
  21. KYTRIL [Concomitant]
     Active Substance: GRANISETRON HYDROCHLORIDE
     Dosage: 3 MG
     Dates: start: 20180810, end: 20181019
  22. CALCIUM CARBONATE\CHOLECALCIFEROL [Concomitant]
     Active Substance: CALCIUM CARBONATE\CHOLECALCIFEROL
     Dosage: UNK
     Dates: start: 20191230
  23. RIVASTIGMINE [Concomitant]
     Active Substance: RIVASTIGMINE
  24. PANTOPRAZOLE SODIUM [Concomitant]
     Active Substance: PANTOPRAZOLE SODIUM
     Dosage: 40 MG
  25. ASPIRIN [Concomitant]
     Active Substance: ASPIRIN
     Dosage: 100 MG, 1 PER DAY ONGOING = CHECKED
     Dates: start: 20181012
  26. METOPROLOL [Concomitant]
     Active Substance: METOPROLOL
     Dosage: 4.75 MG, 1 PER DAY
  27. RANITIDINE HYDROCHLORIDE [Concomitant]
     Active Substance: RANITIDINE HYDROCHLORIDE
     Dosage: 4 MG
     Dates: start: 20180810
  28. LEVOCETIRIZINE DIHYDROCHLORIDE [Concomitant]
     Active Substance: LEVOCETIRIZINE DIHYDROCHLORIDE
     Dosage: 5 MG

REACTIONS (7)
  - Anaemia [Recovered/Resolved]
  - Lymphoedema [Recovered/Resolved]
  - Fatigue [Recovered/Resolved]
  - Nausea [Recovered/Resolved]
  - Epistaxis [Recovered/Resolved]
  - Oedema peripheral [Recovered/Resolved]
  - Underdose [Unknown]

NARRATIVE: CASE EVENT DATE: 20180928
